FAERS Safety Report 5527528-5 (Version None)
Quarter: 2007Q4

REPORT INFORMATION
  Report Type: 
  Country: None (occurrence: None)
  Receive Date: 20071121
  Receipt Date: 20071109
  Transmission Date: 20080405
  Serious: Yes (Hospitalization)
  Sender: FDA-Public Use
  Company Number: A0094988A

PATIENT
  Age: 42 Year
  Sex: Female
  Weight: 69.0828 kg

DRUGS (9)
  1. IMITREX [Suspect]
     Indication: MIGRAINE
     Dosage: AS REQUIRED / ORAL
     Route: 048
     Dates: start: 19960101, end: 19970918
  2. IMITREX [Suspect]
     Indication: MIGRAINE
  3. SERTRALINE HYDROCHLORIDE [Suspect]
     Indication: MIGRAINE PROPHYLAXIS
     Dosage: TWICE PER DAY / ORAL
     Route: 048
     Dates: start: 19970915, end: 19970918
  4. PAROXETINE HCL [Suspect]
     Indication: PANIC DISORDER
     Dates: start: 19971024, end: 19980129
  5. SEMPREX-D                             (PSEUDOEPHEDRINE HCL) [Suspect]
     Indication: SINUSITIS
     Dates: start: 19970918, end: 19970918
  6. IBUPROFEN [Concomitant]
  7. MULTI-VITAMIN [Concomitant]
  8. ASCORBIC ACID [Concomitant]
  9. COLD MEDICATION [Concomitant]

REACTIONS (27)
  - ADVERSE DRUG REACTION [None]
  - ALLERGY TO ANIMAL [None]
  - ANAPHYLACTOID REACTION [None]
  - ANOREXIA [None]
  - APHTHOUS STOMATITIS [None]
  - ARRHYTHMIA [None]
  - CARCINOID SYNDROME [None]
  - CHEST PAIN [None]
  - CONVERSION DISORDER [None]
  - DIZZINESS [None]
  - DRUG HYPERSENSITIVITY [None]
  - DRUG INTERACTION [None]
  - DYSPHAGIA [None]
  - FATIGUE [None]
  - FOOD ALLERGY [None]
  - HYPERSENSITIVITY [None]
  - INFLUENZA LIKE ILLNESS [None]
  - METRORRHAGIA [None]
  - MIGRAINE [None]
  - MYCOTIC ALLERGY [None]
  - OVARIAN CYST [None]
  - PANIC DISORDER [None]
  - SEROTONIN SYNDROME [None]
  - URINE OUTPUT INCREASED [None]
  - UTERINE LEIOMYOMA [None]
  - UTERINE SPASM [None]
  - WEIGHT DECREASED [None]
